FAERS Safety Report 25896202 (Version 1)
Quarter: 2025Q4

REPORT INFORMATION
  Report Type: Spontaneous
  Country: US (occurrence: None)
  Receive Date: 20251007
  Receipt Date: 20251007
  Transmission Date: 20260117
  Serious: Yes (Death)
  Sender: FDA-CTU
  Company Number: None

PATIENT
  Age: 70 Year
  Sex: Female
  Weight: 72.5 kg

DRUGS (6)
  1. TALQUETAMAB-TGVS [Suspect]
     Active Substance: TALQUETAMAB-TGVS
  2. TOLODODEKIN ALFA [Suspect]
     Active Substance: TOLODODEKIN ALFA
  3. CARFILZOMIB [Suspect]
     Active Substance: CARFILZOMIB
  4. LENALIDOMIDE [Suspect]
     Active Substance: LENALIDOMIDE
  5. BENDAMUSTINE [Suspect]
     Active Substance: BENDAMUSTINE
  6. TECLISTAMAB [Suspect]
     Active Substance: TECLISTAMAB

REACTIONS (4)
  - Cytokine release syndrome [None]
  - Immune effector cell-associated neurotoxicity syndrome [None]
  - Temperature intolerance [None]
  - Hospice care [None]

NARRATIVE: CASE EVENT DATE: 20250707
